FAERS Safety Report 23664853 (Version 1)
Quarter: 2024Q1

REPORT INFORMATION
  Report Type: Spontaneous
  Country: US (occurrence: US)
  Receive Date: 20240322
  Receipt Date: 20240322
  Transmission Date: 20240410
  Serious: No
  Sender: FDA-Public Use
  Company Number: US-AMGEN-USASP2024055153

PATIENT
  Age: 14 Year
  Sex: Female

DRUGS (9)
  1. RITUXIMAB [Suspect]
     Active Substance: RITUXIMAB
     Indication: Dermatomyositis
     Dosage: UNK
     Route: 065
  2. HYDROXYCHLOROQUINE [Concomitant]
     Active Substance: HYDROXYCHLOROQUINE
     Indication: Dermatomyositis
     Dosage: UNK
     Route: 065
  3. METHOTREXATE [Concomitant]
     Active Substance: METHOTREXATE
     Indication: Dermatomyositis
     Dosage: UNK
     Route: 065
  4. MYCOPHENOLATE MOFETIL [Concomitant]
     Active Substance: MYCOPHENOLATE MOFETIL
     Indication: Dermatomyositis
     Dosage: UNK
     Route: 065
  5. CYCLOSPORINE [Concomitant]
     Active Substance: CYCLOSPORINE
     Indication: Dermatomyositis
     Dosage: UNK
     Route: 065
  6. TACROLIMUS [Concomitant]
     Active Substance: TACROLIMUS
     Indication: Dermatomyositis
     Dosage: UNK
     Route: 065
  7. TOFACITINIB [Concomitant]
     Active Substance: TOFACITINIB
     Indication: Dermatomyositis
     Dosage: 10 MILLIGRAM, BID
     Route: 065
  8. HUMAN IMMUNOGLOBULIN G [Concomitant]
     Active Substance: HUMAN IMMUNOGLOBULIN G
     Indication: Dermatomyositis
     Dosage: 2 MILLIGRAM/KILOGRAM, Q4WK
     Route: 042
  9. HUMAN IMMUNOGLOBULIN G [Concomitant]
     Active Substance: HUMAN IMMUNOGLOBULIN G
     Indication: Muscle disorder

REACTIONS (2)
  - Drug ineffective for unapproved indication [Unknown]
  - Off label use [Unknown]
